FAERS Safety Report 7778519-5 (Version None)
Quarter: 2011Q3

REPORT INFORMATION
  Report Type: 
  Country: None (occurrence: None)
  Receive Date: 20110926
  Receipt Date: 20110913
  Transmission Date: 20111222
  Serious: Yes (Other)
  Sender: FDA-Public Use
  Company Number: US-BAYER-201041720NA

PATIENT
  Age: 32 Year
  Sex: Female
  Weight: 51.247 kg

DRUGS (4)
  1. TRAMADOL [Concomitant]
     Indication: BACK PAIN
     Dosage: UNK
     Dates: start: 20060101
  2. TIZANIDINE HCL [Concomitant]
     Indication: BACK PAIN
     Dosage: UNK
     Dates: start: 20060901
  3. YASMIN [Suspect]
     Indication: CONTRACEPTION
     Dosage: UNK
     Route: 048
     Dates: start: 20040401, end: 20080601
  4. DROSPIRENONE AND ETHINYL ESTRADIOL [Suspect]
     Indication: CONTRACEPTION
     Dosage: UNK
     Dates: start: 20080701, end: 20091201

REACTIONS (6)
  - CHOLECYSTITIS CHRONIC [None]
  - GASTROINTESTINAL DISORDER [None]
  - PAIN [None]
  - NAUSEA [None]
  - POST CHOLECYSTECTOMY SYNDROME [None]
  - CHOLELITHIASIS [None]
